FAERS Safety Report 13067763 (Version 1)
Quarter: 2016Q4

REPORT INFORMATION
  Report Type: Spontaneous
  Country: US (occurrence: US)
  Receive Date: 20161221
  Receipt Date: 20161221
  Transmission Date: 20170207
  Serious: Yes (Death)
  Sender: FDA-Public Use
  Company Number: None

PATIENT
  Age: 74 Year
  Sex: Male

DRUGS (11)
  1. NEUPOGEN [Suspect]
     Active Substance: FILGRASTIM
  2. ONDANSETRON [Suspect]
     Active Substance: ONDANSETRON
  3. OZALIPLATIN [Suspect]
     Active Substance: OXALIPLATIN
  4. GEMCITABINE [Suspect]
     Active Substance: GEMCITABINE\GEMCITABINE HYDROCHLORIDE
  5. AVASTIN [Suspect]
     Active Substance: BEVACIZUMAB
  6. KEYTRUDA [Suspect]
     Active Substance: PEMBROLIZUMAB
  7. LEUKINE [Suspect]
     Active Substance: SARGRAMOSTIM
  8. MITOMYCIN. [Suspect]
     Active Substance: MITOMYCIN
  9. 5FU [Suspect]
     Active Substance: FLUOROURACIL
  10. TAXOTERE [Suspect]
     Active Substance: DOCETAXEL
  11. LEUCOVORIN. [Suspect]
     Active Substance: LEUCOVORIN

REACTIONS (1)
  - Death [None]
